FAERS Safety Report 13916132 (Version 4)
Quarter: 2017Q4

REPORT INFORMATION
  Report Type: Spontaneous
  Country: HK (occurrence: HK)
  Receive Date: 20170829
  Receipt Date: 20171218
  Transmission Date: 20180320
  Serious: Yes (Other)
  Sender: FDA-Public Use
  Company Number: HK-BAYER-2017-160620

PATIENT
  Age: 46 Year
  Sex: Male

DRUGS (6)
  1. STIVARGA [Suspect]
     Active Substance: REGORAFENIB
     Indication: COLORECTAL CANCER METASTATIC
     Dosage: 120 MG, QD (3-WEEK ON 1-WEEK OFF CYCLE)
     Dates: start: 20140101
  2. STIVARGA [Suspect]
     Active Substance: REGORAFENIB
     Indication: COLORECTAL CANCER METASTATIC
     Dosage: 160 MG DAILY
     Dates: start: 2015, end: 201509
  3. PANITUMUMAB [Concomitant]
     Active Substance: PANITUMUMAB
  4. STIVARGA [Suspect]
     Active Substance: REGORAFENIB
     Indication: COLORECTAL CANCER METASTATIC
     Dosage: 120 MG DAILY
  5. PREDNAZOLINE [Concomitant]
     Active Substance: PREDNAZOLINE
  6. IRINOTECAN [Concomitant]
     Active Substance: IRINOTECAN

REACTIONS (15)
  - Metastases to peritoneum [None]
  - Drug intolerance [None]
  - Epistaxis [None]
  - Fatigue [Recovered/Resolved]
  - Lower gastrointestinal haemorrhage [None]
  - Abdominal distension [None]
  - Nausea [None]
  - Colorectal cancer metastatic [None]
  - Portal hypertension [None]
  - Palmar-plantar erythrodysaesthesia syndrome [None]
  - Hypertension [Recovering/Resolving]
  - Anaemia [None]
  - Lymphadenopathy [None]
  - Toxicity to various agents [None]
  - Dysphonia [None]
